FAERS Safety Report 4934039-4 (Version None)
Quarter: 2006Q1

REPORT INFORMATION
  Report Type: 
  Country: None (occurrence: None)
  Receive Date: 20060303
  Receipt Date: 20060224
  Transmission Date: 20060701
  Serious: Yes (Life-Threatening, Hospitalization)
  Sender: FDA-Public Use
  Company Number: 2006022011

PATIENT
  Age: 51 Year
  Sex: Female
  Weight: 51.4 kg

DRUGS (3)
  1. XALATAN [Suspect]
     Indication: GLAUCOMA
     Dosage: INTRAOCULAR
     Route: 031
     Dates: start: 20060111, end: 20060208
  2. TIMOLOL MALEATE [Suspect]
     Indication: GLAUCOMA
     Dosage: INTRAOCULAR
     Route: 031
     Dates: start: 20021224, end: 20060208
  3. ALL OTHER THERAPEUTIC PRODUCTS (ALL OTHER THERAPEUTIC PRODUCTS) [Suspect]
     Indication: GLAUCOMA
     Dosage: INTRAOCULAR
     Route: 031

REACTIONS (1)
  - HYPERKALAEMIA [None]
